FAERS Safety Report 4300181-4 (Version None)
Quarter: 2004Q1

REPORT INFORMATION
  Report Type: 
  Country: None (occurrence: None)
  Receive Date: 20040218
  Receipt Date: 20040205
  Transmission Date: 20041129
  Serious: Yes (Life-Threatening)
  Sender: FDA-Public Use
  Company Number: ES-SHR-04-020760

PATIENT
  Age: 28 Year
  Sex: Female
  Weight: 51 kg

DRUGS (2)
  1. YASMIN [Suspect]
     Indication: ORAL CONTRACEPTION
     Dosage: 1 TAB(S), 21D/28D, ORAL
     Route: 048
     Dates: start: 20030101
  2. DAFLON 500 (DIOSMIN, HESPERIDIN) [Suspect]
     Indication: PERIPHERAL VASCULAR DISORDER
     Dosage: 1 TAB(S), 1X/DAY
     Dates: start: 20031015

REACTIONS (1)
  - PANCREATITIS [None]
